FAERS Safety Report 6275949-8 (Version None)
Quarter: 2009Q3

REPORT INFORMATION
  Report Type: 
  Country: None (occurrence: None)
  Receive Date: 20090720
  Receipt Date: 20090615
  Transmission Date: 20100115
  Serious: No
  Sender: FDA-Public Use
  Company Number: CCC100849

PATIENT
  Age: 7 Year
  Sex: Female

DRUGS (1)
  1. LEVETIRACETAM [Suspect]
     Indication: EPILEPSY
     Dates: start: 20090201, end: 20090601

REACTIONS (4)
  - DIZZINESS [None]
  - DREAMY STATE [None]
  - FATIGUE [None]
  - HEADACHE [None]
